FAERS Safety Report 7724341-5 (Version None)
Quarter: 2011Q3

REPORT INFORMATION
  Report Type: 
  Country: None (occurrence: None)
  Receive Date: 20110901
  Receipt Date: 20110830
  Transmission Date: 20111222
  Serious: Yes (Congenital Anomaly)
  Sender: FDA-Public Use
  Company Number: US-CEPHALON-2011004576

PATIENT
  Sex: Female

DRUGS (8)
  1. SYNTHROID [Concomitant]
  2. LEXAPRO [Concomitant]
  3. BUSPAR [Concomitant]
  4. PROVIGIL [Suspect]
     Route: 064
  5. PRENATAL VITAMINS [Concomitant]
  6. CALCIUM CARBONATE [Concomitant]
  7. METFORMIN [Concomitant]
  8. NASONEX [Concomitant]

REACTIONS (1)
  - ACOUSTIC STIMULATION TESTS ABNORMAL [None]
